FAERS Safety Report 14577561 (Version 1)
Quarter: 2018Q1

REPORT INFORMATION
  Report Type: Spontaneous
  Country: US (occurrence: US)
  Receive Date: 20180226
  Receipt Date: 20180226
  Transmission Date: 20180509
  Serious: Yes (Disabling)
  Sender: FDA-Public Use
  Company Number: None

PATIENT
  Age: 55 Year
  Sex: Female
  Weight: 73.8 kg

DRUGS (4)
  1. CIPRO [Suspect]
     Active Substance: CIPROFLOXACIN HYDROCHLORIDE
     Indication: FOOD POISONING
     Route: 048
     Dates: start: 20170825, end: 20170829
  2. FOLIC ACID. [Concomitant]
     Active Substance: FOLIC ACID
  3. MELATONIN [Concomitant]
     Active Substance: MELATONIN
  4. METHOTREXATE. [Concomitant]
     Active Substance: METHOTREXATE

REACTIONS (6)
  - Peripheral swelling [None]
  - Arthralgia [None]
  - Gait disturbance [None]
  - Muscle spasms [None]
  - Tendonitis [None]
  - Dysstasia [None]

NARRATIVE: CASE EVENT DATE: 20170829
